FAERS Safety Report 6867716-9 (Version None)
Quarter: 2010Q3

REPORT INFORMATION
  Report Type: 
  Country: None (occurrence: None)
  Receive Date: 20100722
  Receipt Date: 20100524
  Transmission Date: 20110219
  Serious: No
  Sender: FDA-Public Use
  Company Number: US-BAUSCH-2010BL002768

PATIENT
  Age: 58 Year
  Sex: Male

DRUGS (8)
  1. DORZOLAMIDE HYDROCHLORIDE [Suspect]
     Indication: RETINAL HAEMORRHAGE
     Route: 047
     Dates: start: 20100505, end: 20100501
  2. DORZOLAMIDE HYDROCHLORIDE [Suspect]
     Indication: OFF LABEL USE
     Route: 047
     Dates: start: 20100505, end: 20100501
  3. DORZOLAMIDE HYDROCHLORIDE [Suspect]
     Route: 047
     Dates: start: 20100501
  4. DORZOLAMIDE HYDROCHLORIDE [Suspect]
     Route: 047
     Dates: start: 20100501
  5. RESTASIS [Concomitant]
     Indication: DRY EYE
     Route: 047
     Dates: start: 20020101
  6. ALREX [Concomitant]
     Indication: DRY EYE
     Route: 047
     Dates: start: 20100424
  7. SOOTHE XP [Concomitant]
     Indication: DRY EYE
     Route: 047
     Dates: start: 20020101
  8. FML FORTE [Concomitant]
     Indication: DRY EYE
     Route: 047
     Dates: end: 20100424

REACTIONS (2)
  - INSTILLATION SITE PAIN [None]
  - LACRIMATION INCREASED [None]
